FAERS Safety Report 12034563 (Version 1)
Quarter: 2016Q1

REPORT INFORMATION
  Report Type: Spontaneous
  Country: US (occurrence: US)
  Receive Date: 20160207
  Receipt Date: 20160207
  Transmission Date: 20160526
  Serious: Yes (Death, Other)
  Sender: FDA-Public Use
  Company Number: US-NORTHSTAR HEALTHCARE HOLDINGS-US-2016NSR000281

PATIENT
  Age: 59 Year
  Sex: Female

DRUGS (1)
  1. PROPRANOLOL HYDROCHLORIDE. [Suspect]
     Active Substance: PROPRANOLOL HYDROCHLORIDE
     Indication: PRODUCT USED FOR UNKNOWN INDICATION
     Dosage: 1100 MG, SINGLE
     Route: 048

REACTIONS (12)
  - Respiratory distress [Unknown]
  - Toxicity to various agents [Fatal]
  - Pulseless electrical activity [Unknown]
  - Bradycardia [Unknown]
  - Malaise [Unknown]
  - Capillary nail refill test abnormal [Unknown]
  - Cardiomegaly [Unknown]
  - Anxiety [Unknown]
  - Cardiac arrest [Unknown]
  - Hypotension [Unknown]
  - Hyperhidrosis [Unknown]
  - Completed suicide [Fatal]

NARRATIVE: CASE EVENT DATE: 2014
